FAERS Safety Report 14812960 (Version 1)
Quarter: 2018Q2

REPORT INFORMATION
  Report Type: Spontaneous
  Country: FR (occurrence: FR)
  Receive Date: 20180426
  Receipt Date: 20180426
  Transmission Date: 20180711
  Serious: Yes (Other)
  Sender: FDA-Public Use
  Company Number: FR-MERCK KGAA-2046535

PATIENT
  Age: 61 Year
  Sex: Female
  Weight: 67 kg

DRUGS (1)
  1. NOVOTHYROX [Suspect]
     Active Substance: LEVOTHYROXINE SODIUM
     Indication: HYPOTHYROIDISM
     Route: 048
     Dates: start: 20170718, end: 20170825

REACTIONS (20)
  - Fatigue [None]
  - Anxiety [None]
  - Mood altered [None]
  - Irritability [Recovered/Resolved]
  - Hypoacusis [None]
  - Aggression [None]
  - Blood creatine phosphokinase increased [Recovered/Resolved]
  - Muscle spasms [None]
  - Insomnia [Recovered/Resolved]
  - Depersonalisation/derealisation disorder [None]
  - Myalgia [Recovered/Resolved]
  - Loss of personal independence in daily activities [None]
  - Limb discomfort [None]
  - Crying [None]
  - Memory impairment [None]
  - Impaired driving ability [None]
  - Muscle injury [None]
  - Palpitations [Recovered/Resolved]
  - Malaise [None]
  - Depression [None]

NARRATIVE: CASE EVENT DATE: 201707
